FAERS Safety Report 5983236-8 (Version None)
Quarter: 2008Q4

REPORT INFORMATION
  Report Type: 
  Country: None (occurrence: None)
  Receive Date: 20081208
  Receipt Date: 20081107
  Transmission Date: 20090506
  Serious: No
  Sender: FDA-Public Use
  Company Number: US-BAYER-200811494BCC

PATIENT
  Age: 83 Year
  Sex: Male

DRUGS (2)
  1. ALEVE [Suspect]
     Indication: ARTHRITIS
     Dosage: UNIT DOSE: 220 MG
     Dates: start: 20080101
  2. NAPROSYN [Concomitant]

REACTIONS (1)
  - MEDICATION RESIDUE [None]
